FAERS Safety Report 6475610-0 (Version None)
Quarter: 2009Q4

REPORT INFORMATION
  Report Type: 
  Country: None (occurrence: None)
  Receive Date: 20091119
  Receipt Date: 20090803
  Transmission Date: 20100525
  Serious: Yes (Other)
  Sender: FDA-Public Use
  Company Number: 2009SP016820

PATIENT
  Age: 20 Year
  Sex: Female

DRUGS (3)
  1. IMPLANON [Suspect]
     Indication: DRUG USE FOR UNKNOWN INDICATION
     Dosage: SBDE
     Dates: start: 20090701
  2. TOPAMAX [Concomitant]
  3. AMBIEN [Concomitant]

REACTIONS (4)
  - CONVULSION [None]
  - FEELING ABNORMAL [None]
  - HYPOAESTHESIA [None]
  - VISUAL IMPAIRMENT [None]
